FAERS Safety Report 6710168-X (Version None)
Quarter: 2010Q2

REPORT INFORMATION
  Report Type: 
  Country: None (occurrence: None)
  Receive Date: 20100430
  Receipt Date: 20100415
  Transmission Date: 20101027
  Serious: No
  Sender: FDA-Public Use
  Company Number: 2010SP020861

PATIENT
  Age: 47 Year
  Weight: 133.8111 kg

DRUGS (1)
  1. ZEGERID OTC [Suspect]
     Dosage: PO
     Route: 048

REACTIONS (7)
  - EYE PRURITUS [None]
  - EYE SWELLING [None]
  - HYPERSENSITIVITY [None]
  - HYPOAESTHESIA ORAL [None]
  - ORAL PRURITUS [None]
  - PRURITUS [None]
  - SWELLING FACE [None]
